FAERS Safety Report 8336546-3 (Version None)
Quarter: 2012Q1

REPORT INFORMATION
  Report Type: 
  Country: None (occurrence: None)
  Receive Date: 20120329
  Receipt Date: 20100302
  Transmission Date: 20120608
  Serious: Yes (Other)
  Sender: FDA-Public Use
  Company Number: PHEH2010US02818

PATIENT
  Sex: Male

DRUGS (13)
  1. SIMVASTATIN [Concomitant]
  2. EXELON [Suspect]
     Dosage: 4.6 MG, QD
  3. CLONAZEPAM [Concomitant]
  4. ASPIRIN [Concomitant]
  5. SINEMET [Suspect]
     Dosage: 4.6 MG, QD 9.5 MG, QD
  6. DITROPAN XL [Concomitant]
  7. CEREFOLIN (CALCIUM L-METHYLFOLATE, CYANOCOBALAMIN, PYRIDOXINE HYDROCHL [Concomitant]
  8. VITAMIN D [Concomitant]
  9. FOSAMAX [Concomitant]
  10. MULTIVITAMINS (ASCORBIC ACID, ERGOCALCIFEROL, FOLIC ACID, NCOTINAMIDE, [Concomitant]
  11. ASCORBIC ACID [Concomitant]
  12. AMANTADINE HCL [Concomitant]
  13. SAW PALMETTO (SERENOA REPENS) [Concomitant]

REACTIONS (2)
  - HALLUCINATION [None]
  - MIDDLE INSOMNIA [None]
